FAERS Safety Report 4417343-8 (Version None)
Quarter: 2004Q3

REPORT INFORMATION
  Report Type: 
  Country: None (occurrence: None)
  Receive Date: 20040806
  Receipt Date: 20040729
  Transmission Date: 20050211
  Serious: Yes (Hospitalization)
  Sender: FDA-Public Use
  Company Number: FR-GLAXOSMITHKLINE-B0340922A

PATIENT
  Age: 39 Year
  Sex: Male

DRUGS (6)
  1. ZOPHREN [Suspect]
     Indication: ILL-DEFINED DISORDER
     Route: 065
  2. AUGMENTIN [Suspect]
     Indication: ILL-DEFINED DISORDER
     Route: 042
     Dates: start: 20040224
  3. FRAXIPARINE [Suspect]
     Indication: ILL-DEFINED DISORDER
     Route: 058
  4. OMEPRAZOLE [Suspect]
     Indication: ILL-DEFINED DISORDER
     Route: 042
  5. EUPANTOL [Suspect]
     Indication: ILL-DEFINED DISORDER
     Route: 048
  6. PERFALGAN [Suspect]
     Indication: ILL-DEFINED DISORDER
     Route: 042

REACTIONS (3)
  - ALANINE AMINOTRANSFERASE INCREASED [None]
  - ASPARTATE AMINOTRANSFERASE INCREASED [None]
  - VOMITING [None]
